FAERS Safety Report 12492291 (Version 1)
Quarter: 2016Q2

REPORT INFORMATION
  Report Type: Spontaneous
  Country: US (occurrence: None)
  Receive Date: 20160622
  Receipt Date: 20160622
  Transmission Date: 20160815
  Serious: Yes (Hospitalization)
  Sender: FDA-Public Use
  Company Number: None

PATIENT
  Age: 68 Year
  Sex: Female
  Weight: 85.73 kg

DRUGS (16)
  1. CARAFATE [Concomitant]
     Active Substance: SUCRALFATE
  2. IMODIUM [Concomitant]
     Active Substance: LOPERAMIDE HYDROCHLORIDE
  3. NEURONTIN [Concomitant]
     Active Substance: GABAPENTIN
  4. MAGNESIUM OXIDE. [Concomitant]
     Active Substance: MAGNESIUM OXIDE
  5. NEXIUM [Concomitant]
     Active Substance: ESOMEPRAZOLE MAGNESIUM
  6. ZOFRAN [Concomitant]
     Active Substance: ONDANSETRON HYDROCHLORIDE
  7. PROTONIX [Concomitant]
     Active Substance: PANTOPRAZOLE SODIUM
  8. ATIVAN [Concomitant]
     Active Substance: LORAZEPAM
  9. INSULIN PUMP [Concomitant]
     Active Substance: INSULIN NOS
  10. SYNTHROID [Concomitant]
     Active Substance: LEVOTHYROXINE SODIUM
  11. MARINOL [Concomitant]
     Active Substance: DRONABINOL
  12. CARBOPLATIN AUC 5 IV [Suspect]
     Active Substance: CARBOPLATIN
     Indication: MALIGNANT PERITONEAL NEOPLASM
     Dosage: 395 MG Q 28 DAYS IV
     Route: 042
  13. DOXIL [Suspect]
     Active Substance: DOXORUBICIN HYDROCHLORIDE
     Indication: MALIGNANT PERITONEAL NEOPLASM
     Dosage: 61 MG Q 28 DAYS IV
     Route: 042
  14. COMPAZINE [Concomitant]
     Active Substance: PROCHLORPERAZINE MALEATE
  15. QUINAPRIL. [Concomitant]
     Active Substance: QUINAPRIL
  16. HYDROCORTISONE CREAM [Concomitant]
     Active Substance: HYDROCORTISONE

REACTIONS (26)
  - Oesophageal ulcer [None]
  - Dysphagia [None]
  - Arthralgia [None]
  - Sinus tachycardia [None]
  - Metastases to kidney [None]
  - Metastases to liver [None]
  - Hypokalaemia [None]
  - Haemoptysis [None]
  - Hypotension [None]
  - Haemorrhagic anaemia [None]
  - Hyperglycaemia [None]
  - Weight decreased [None]
  - Metastases to rectum [None]
  - Pulmonary embolism [None]
  - Dizziness [None]
  - Blood glucose decreased [None]
  - Oesophageal haemorrhage [None]
  - Nausea [None]
  - Impaired gastric emptying [None]
  - Malignant neoplasm progression [None]
  - Fall [None]
  - Back pain [None]
  - Hypoglycaemia [None]
  - Autonomic neuropathy [None]
  - Haematemesis [None]
  - Hypomagnesaemia [None]

NARRATIVE: CASE EVENT DATE: 20160601
